FAERS Safety Report 4376838-6 (Version None)
Quarter: 2004Q2

REPORT INFORMATION
  Report Type: 
  Country: None (occurrence: None)
  Receive Date: 20040609
  Receipt Date: 20040315
  Transmission Date: 20050107
  Serious: Yes (Hospitalization)
  Sender: FDA-Public Use
  Company Number: PHEH2004US03041

PATIENT

DRUGS (1)
  1. GLEEVEC [Suspect]

REACTIONS (3)
  - PERICARDIAL EFFUSION [None]
  - PERICARDITIS [None]
  - PERIORBITAL OEDEMA [None]
